FAERS Safety Report 21270684 (Version 3)
Quarter: 2022Q3

REPORT INFORMATION
  Report Type: Report from Study
  Country: DO (occurrence: DO)
  Receive Date: 20220830
  Receipt Date: 20220909
  Transmission Date: 20221026
  Serious: Yes (Death, Hospitalization, Other)
  Sender: FDA-Public Use
  Company Number: DO-Merck Healthcare KGaA-9345785

PATIENT
  Age: 72 Year
  Sex: Male

DRUGS (1)
  1. CETUXIMAB [Suspect]
     Active Substance: CETUXIMAB
     Indication: Tongue neoplasm malignant stage unspecified
     Dosage: UNK, OTHER (ONCE IN 22 DAYS)
     Route: 065

REACTIONS (8)
  - Pneumonia [Fatal]
  - General physical health deterioration [Unknown]
  - Feeding disorder [Recovering/Resolving]
  - Weight decreased [Recovering/Resolving]
  - Listless [Recovering/Resolving]
  - Malignant neoplasm progression [Unknown]
  - Vomiting [Recovering/Resolving]
  - Off label use [Unknown]

NARRATIVE: CASE EVENT DATE: 20220817
